FAERS Safety Report 6377325-6 (Version None)
Quarter: 2009Q3

REPORT INFORMATION
  Report Type: 
  Country: None (occurrence: None)
  Receive Date: 20090923
  Receipt Date: 20090923
  Transmission Date: 20100115
  Serious: Yes (Hospitalization)
  Sender: FDA-Public Use
  Company Number: None

PATIENT
  Age: 26 Year
  Sex: Male
  Weight: 112.1 kg

DRUGS (1)
  1. PREDNISONE [Suspect]
     Indication: WEGENER'S GRANULOMATOSIS
     Dosage: 80MG, DAILY, ORAL
     Route: 048
     Dates: start: 20081101

REACTIONS (2)
  - OEDEMA PERIPHERAL [None]
  - PAIN [None]
